FAERS Safety Report 7633737-1 (Version None)
Quarter: 2011Q3

REPORT INFORMATION
  Report Type: 
  Country: None (occurrence: None)
  Receive Date: 20110725
  Receipt Date: 20110720
  Transmission Date: 20111222
  Serious: Yes (Life-Threatening)
  Sender: FDA-Public Use
  Company Number: IN-ASTRAZENECA-2011SE43365

PATIENT
  Age: 45 Year
  Sex: Female
  Weight: 66 kg

DRUGS (3)
  1. BUPIVACAINE HCL [Suspect]
     Route: 053
  2. LIDOCAINE W/ EPINEPHRINE [Suspect]
     Route: 053
  3. MIDAZOLAM HCL [Concomitant]
     Indication: SEDATIVE THERAPY
     Dosage: 1 MG
     Route: 042

REACTIONS (3)
  - RESPIRATORY DISTRESS [None]
  - STRIDOR [None]
  - VOCAL CORD PARALYSIS [None]
